FAERS Safety Report 7798659 (Version 2)
Quarter: 2012Q4

REPORT INFORMATION
  Report Type: 
  Country: FR (occurrence: FR)
  Receive Date: 20110203
  Receipt Date: 20121029
  Transmission Date: 20130627
  Serious: Yes (Hospitalization)
  Sender: FDA-Public Use
  Company Number: FR-PFIZER INC-2011020587

PATIENT
  Age: 40 Year
  Sex: Male
  Weight: 48 kg

DRUGS (2)
  1. GENOTONORM [Suspect]
     Indication: GROWTH HORMONE DEFICIENCY
     Dosage: 0.3 mg, 1x/day
     Route: 058
     Dates: start: 20100930, end: 20101130
  2. GENOTONORM [Suspect]
     Dosage: 0.6 mg, 1x/day
     Route: 058
     Dates: start: 20101201, end: 20101223

REACTIONS (1)
  - Pulmonary arterial hypertension [Not Recovered/Not Resolved]
